FAERS Safety Report 8327405-0 (Version None)
Quarter: 2012Q2

REPORT INFORMATION
  Report Type: 
  Country: None (occurrence: None)
  Receive Date: 20120430
  Receipt Date: 20120422
  Transmission Date: 20120825
  Serious: Yes (Other)
  Sender: FDA-Public Use
  Company Number: 2012SP021367

PATIENT
  Sex: Male

DRUGS (3)
  1. RIBAVIRIN [Suspect]
     Indication: HEPATITIS C
     Dosage: ;UNK;UNK
     Dates: start: 20120302
  2. PEG-INTRON [Suspect]
     Indication: HEPATITIS C
     Dosage: ;UNK;UNK
     Dates: start: 20120302
  3. VICTRELIS [Suspect]
     Indication: HEPATITIS C
     Dosage: ;UNK;UNK
     Dates: start: 20120406

REACTIONS (10)
  - INFLUENZA LIKE ILLNESS [None]
  - ASTHENIA [None]
  - RED BLOOD CELL COUNT DECREASED [None]
  - WHITE BLOOD CELL COUNT DECREASED [None]
  - DECREASED APPETITE [None]
  - FEELING ABNORMAL [None]
  - PYREXIA [None]
  - LETHARGY [None]
  - WEIGHT DECREASED [None]
  - HYPERSOMNIA [None]
